FAERS Safety Report 19305237 (Version 2)
Quarter: 2021Q2

REPORT INFORMATION
  Report Type: Spontaneous
  Country: IT (occurrence: IT)
  Receive Date: 20210526
  Receipt Date: 20210529
  Transmission Date: 20210717
  Serious: Yes (Hospitalization, Other)
  Sender: FDA-Public Use
  Company Number: IT-AUROBINDO-AUR-APL-2021-021349

PATIENT
  Age: 13 Year
  Sex: Female
  Weight: 50 kg

DRUGS (4)
  1. TAVOR (SIMVASTATIN) [Suspect]
     Active Substance: SIMVASTATIN
     Indication: AFFECTIVE DISORDER
     Dosage: 3 MILLIGRAM TOTAL
     Route: 048
  2. OLANZAPINE. [Suspect]
     Active Substance: OLANZAPINE
     Indication: PRODUCT USED FOR UNKNOWN INDICATION
     Dosage: 10 MILLIGRAM, TOTAL
     Route: 048
     Dates: start: 20210417, end: 20210417
  3. LARGACTIL [Suspect]
     Active Substance: CHLORPROMAZINE
     Indication: AFFECTIVE DISORDER
     Dosage: 75 MILLIGRAM TOTAL
     Route: 048
  4. PARACETAMOL TABLET [Suspect]
     Active Substance: ACETAMINOPHEN
     Indication: PRODUCT USED FOR UNKNOWN INDICATION
     Dosage: 3 GRAM,TOTAL
     Route: 048
     Dates: start: 20210417, end: 20210417

REACTIONS (2)
  - Drug abuse [Recovered/Resolved]
  - Abdominal pain upper [Recovered/Resolved]

NARRATIVE: CASE EVENT DATE: 20210417
